FAERS Safety Report 5737655-5 (Version None)
Quarter: 2008Q2

REPORT INFORMATION
  Report Type: 
  Country: None (occurrence: None)
  Receive Date: 20080512
  Receipt Date: 20080512
  Transmission Date: 20081010
  Serious: Yes (Life-Threatening, Hospitalization, Other)
  Sender: FDA-Public Use
  Company Number: None

PATIENT
  Age: 61 Year
  Sex: Female
  Weight: 61.2356 kg

DRUGS (2)
  1. ADVAIR DISKUS 250/50 [Suspect]
     Indication: ASTHMA
     Dosage: ONE PUFF 2XDAILY INHAL
     Route: 055
     Dates: start: 20061229, end: 20070103
  2. ADVAIR DISKUS 250/50 [Suspect]
     Indication: CHRONIC OBSTRUCTIVE PULMONARY DISEASE
     Dosage: ONE PUFF 2XDAILY INHAL
     Route: 055
     Dates: start: 20061229, end: 20070103

REACTIONS (4)
  - CARDIAC DISORDER [None]
  - GASTROINTESTINAL HAEMORRHAGE [None]
  - MYOCARDIAL INFARCTION [None]
  - ULCER HAEMORRHAGE [None]
